FAERS Safety Report 17273014 (Version 6)
Quarter: 2021Q3

REPORT INFORMATION
  Report Type: Spontaneous
  Country: US (occurrence: US)
  Receive Date: 20200115
  Receipt Date: 20210921
  Transmission Date: 20211014
  Serious: Yes (Disabling, Other)
  Sender: FDA-Public Use
  Company Number: US-PFIZER INC-2020017107

PATIENT
  Age: 41 Year
  Sex: Male

DRUGS (1)
  1. XELJANZ XR [Suspect]
     Active Substance: TOFACITINIB CITRATE
     Dosage: 11 MG, 1X/DAY
     Route: 048

REACTIONS (7)
  - Blood pressure abnormal [Unknown]
  - Near death experience [Unknown]
  - Autoimmune disorder [Unknown]
  - Photosensitivity reaction [Not Recovered/Not Resolved]
  - Drug hypersensitivity [Unknown]
  - Product prescribing error [Unknown]
  - White blood cell disorder [Unknown]
